FAERS Safety Report 5672655-5 (Version None)
Quarter: 2008Q1

REPORT INFORMATION
  Report Type: 
  Country: None (occurrence: None)
  Receive Date: 20080319
  Receipt Date: 20070824
  Transmission Date: 20080703
  Serious: No
  Sender: FDA-Public Use
  Company Number: US-KINGPHARMUSA00001-K200701105

PATIENT

DRUGS (5)
  1. ALTACE [Suspect]
     Dosage: 2.5 MG, UNK
     Route: 048
     Dates: end: 20070501
  2. ALTACE [Suspect]
     Dosage: 10 MG, UNK
     Dates: start: 20070501, end: 20070101
  3. ALTACE [Suspect]
     Dosage: 2.5 MG, UNK
     Dates: start: 20070101, end: 20070801
  4. ALTACE [Suspect]
     Dosage: 5 MG, QD
     Dates: start: 20070801
  5. GLUMETZA [Concomitant]

REACTIONS (6)
  - BLOOD GLUCOSE ABNORMAL [None]
  - BLOOD PRESSURE ABNORMAL [None]
  - DIZZINESS [None]
  - DRUG DISPENSING ERROR [None]
  - INCORRECT DOSE ADMINISTERED [None]
  - TINNITUS [None]
